FAERS Safety Report 18376308 (Version 5)
Quarter: 2021Q1

REPORT INFORMATION
  Report Type: Report from Study
  Country: US (occurrence: US)
  Receive Date: 20201013
  Receipt Date: 20210104
  Transmission Date: 20210419
  Serious: No
  Sender: FDA-Public Use
  Company Number: NVSC2020US272241

PATIENT
  Sex: Male

DRUGS (4)
  1. ENTRESTO [Suspect]
     Active Substance: SACUBITRIL\VALSARTAN
     Dosage: 1 DF, QD (24/26 MG, REDUCED DOSE)
     Route: 048
  2. ENTRESTO [Suspect]
     Active Substance: SACUBITRIL\VALSARTAN
     Dosage: 50 MG, BID (24.26 MG)
     Route: 048
  3. ENTRESTO [Suspect]
     Active Substance: SACUBITRIL\VALSARTAN
     Indication: CARDIAC FAILURE
     Dosage: 1 DF, BID (24/26 MG)
     Route: 048
  4. ENTRESTO [Suspect]
     Active Substance: SACUBITRIL\VALSARTAN
     Indication: CARDIAC FAILURE
     Dosage: UNK UNK, BID
     Route: 048

REACTIONS (9)
  - Feeling jittery [Unknown]
  - Psychomotor hyperactivity [Unknown]
  - Hypotension [Unknown]
  - Muscle tightness [Unknown]
  - Dizziness [Recovering/Resolving]
  - Decreased activity [Unknown]
  - Blood pressure increased [Unknown]
  - Asthenia [Unknown]
  - Product dose omission issue [Unknown]
